FAERS Safety Report 8211671 (Version 2)
Quarter: 2013Q1

REPORT INFORMATION
  Report Type: Spontaneous
  Country: US (occurrence: None)
  Receive Date: 20111020
  Receipt Date: 20120912
  Transmission Date: 20140127
  Serious: Yes (Other)
  Sender: FDA-Public Use
  Company Number: 2011MA014736

PATIENT
  Sex: Female
  Weight: 72.58 kg

DRUGS (13)
  1. METOCLOPRAMIDE [Suspect]
     Indication: PRODUCT USED FOR UNKNOWN INDICATION
     Dates: start: 20070330, end: 20070530
  2. ALPRAZOLAM [Concomitant]
  3. AMBIEN [Concomitant]
  4. FLEXERIL [Concomitant]
  5. METOPROLOL [Concomitant]
  6. PHENERGAN [Concomitant]
  7. PREVACID [Concomitant]
  8. REMERON [Concomitant]
  9. TIGAN SUPPOSITORY [Concomitant]
  10. TRAMADOL/APAP [Concomitant]
  11. ULTRACET [Concomitant]
  12. VALTREX [Concomitant]
  13. VIOKASE [Concomitant]

REACTIONS (3)
  - Tardive dyskinesia [None]
  - Emotional disorder [None]
  - Economic problem [None]
